FAERS Safety Report 5479728-0 (Version None)
Quarter: 2007Q4

REPORT INFORMATION
  Report Type: 
  Country: None (occurrence: None)
  Receive Date: 20071008
  Receipt Date: 20070927
  Transmission Date: 20080405
  Serious: Yes (Other)
  Sender: FDA-Public Use
  Company Number: US-JNJFOC-20071000251

PATIENT
  Age: 14 Year
  Sex: Male
  Weight: 63.5 kg

DRUGS (3)
  1. CONCERTA [Suspect]
     Indication: ATTENTION DEFICIT/HYPERACTIVITY DISORDER
     Route: 048
  2. BIAXIN [Concomitant]
     Indication: URINARY TRACT INFECTION
     Route: 048
  3. ALLEGRA-D [Concomitant]
     Indication: MULTIPLE ALLERGIES
     Route: 048

REACTIONS (2)
  - BLINDNESS [None]
  - VISION BLURRED [None]
